FAERS Safety Report 11533920 (Version 1)
Quarter: 2015Q3

REPORT INFORMATION
  Report Type: Spontaneous
  Country: US (occurrence: US)
  Receive Date: 20150922
  Receipt Date: 20150922
  Transmission Date: 20151125
  Serious: No
  Sender: FDA-Public Use
  Company Number: US-TEVA-529228USA

PATIENT
  Sex: Female

DRUGS (1)
  1. CARVEDILOL. [Suspect]
     Active Substance: CARVEDILOL

REACTIONS (3)
  - Pruritus [Unknown]
  - Abdominal discomfort [Unknown]
  - Erythema [Unknown]
